FAERS Safety Report 7669229-3 (Version None)
Quarter: 2011Q3

REPORT INFORMATION
  Report Type: 
  Country: None (occurrence: None)
  Receive Date: 20110808
  Receipt Date: 20110729
  Transmission Date: 20111222
  Serious: Yes (Other)
  Sender: FDA-Public Use
  Company Number: PHHY2009TH68674

PATIENT
  Age: 55 Year
  Sex: Male

DRUGS (11)
  1. AMLODIPINE [Concomitant]
  2. ZOLEDRONOC ACID [Suspect]
     Indication: OSTEOPOROSIS
     Dosage: (50MG DRIP 30 MINUTES)
     Route: 042
     Dates: start: 20081128
  3. IBRUPROFEN [Concomitant]
     Dosage: UNK
  4. MYDOCALM [Concomitant]
  5. ACETAMINOPHEN [Concomitant]
     Dosage: 2 DF, UNK
  6. COLCHICINE [Concomitant]
  7. MINIPRESS [Concomitant]
  8. CRESTOR [Concomitant]
  9. DIOVAN [Concomitant]
     Dosage: 80 MG, UNK
  10. CARDULAR [Concomitant]
  11. ACTONEL [Concomitant]

REACTIONS (3)
  - BLOOD CREATININE ABNORMAL [None]
  - RENAL FAILURE [None]
  - THROMBOCYTOPENIA [None]
